FAERS Safety Report 7251566-8 (Version None)
Quarter: 2011Q1

REPORT INFORMATION
  Report Type: 
  Country: None (occurrence: None)
  Receive Date: 20110128
  Receipt Date: 20110124
  Transmission Date: 20110831
  Serious: Yes (Hospitalization, Other)
  Sender: FDA-Public Use
  Company Number: GB-PFIZER INC-2011009476

PATIENT
  Age: 11 Year
  Sex: Male
  Weight: 51 kg

DRUGS (6)
  1. METHYLPREDNISOLONE [Suspect]
     Indication: JUVENILE ARTHRITIS
     Dosage: 1 G, UNK
     Route: 042
     Dates: start: 20091206, end: 20091206
  2. METHYLPREDNISOLONE [Suspect]
     Indication: VASCULITIS
  3. HYDRALAZINE [Concomitant]
     Dosage: 25 MG, 3X/DAY
     Route: 048
  4. CEFOTAXIME [Concomitant]
     Route: 042
  5. PARACETAMOL [Concomitant]
     Dosage: 1 G, AS NEEDED
     Route: 048
  6. ACICLOVIR [Concomitant]
     Route: 042

REACTIONS (1)
  - HYPERTENSIVE ENCEPHALOPATHY [None]
